FAERS Safety Report 10757528 (Version 1)
Quarter: 2015Q1

REPORT INFORMATION
  Report Type: Spontaneous
  Country: NL (occurrence: NL)
  Receive Date: 20150203
  Receipt Date: 20150203
  Transmission Date: 20150721
  Serious: Yes (Disabling)
  Sender: FDA-Public Use
  Company Number: NL-TEVA-538148ISR

PATIENT
  Age: 58 Year
  Sex: Female
  Weight: 56 kg

DRUGS (4)
  1. PREDNISONE. [Suspect]
     Active Substance: PREDNISONE
     Indication: BREAST CANCER
     Dosage: 6 TIMES WITH AN INTERVAL OG 3 WEEKS
     Route: 048
     Dates: start: 20131021
  2. DOXORUBICIN [Suspect]
     Active Substance: DOXORUBICIN
     Indication: BREAST CANCER
     Dosage: INJECTION/INFUSION, 6 TIMES WITH AN INTERVAL OF 3 WEEKS
     Route: 042
  3. CYCLOFOSFAMIDE INJECTIE/INFUUS [Suspect]
     Active Substance: CYCLOPHOSPHAMIDE
     Indication: BREAST CANCER
     Dosage: 6 TIMES WITH AN INTERVAL OF 3 WEEKS
     Route: 042
     Dates: start: 20131021
  4. TAXOTERE [Suspect]
     Active Substance: DOCETAXEL
     Indication: BREAST CANCER
     Dosage: 6 TIMES WITH AN INTERVAL OF 3 WEEKS
     Dates: start: 20131021

REACTIONS (1)
  - Mental impairment [Not Recovered/Not Resolved]

NARRATIVE: CASE EVENT DATE: 201310
